FAERS Safety Report 5339638-6 (Version None)
Quarter: 2007Q2

REPORT INFORMATION
  Report Type: 
  Country: None (occurrence: None)
  Receive Date: 20070404
  Receipt Date: 20060824
  Transmission Date: 20071010
  Serious: Yes (Life-Threatening, Hospitalization, Other)
  Sender: FDA-Public Use
  Company Number: 2006095440

PATIENT
  Age: 25 Year
  Sex: Female

DRUGS (6)
  1. GEODON [Suspect]
     Indication: DRUG USE FOR UNKNOWN INDICATION
     Dosage: (80 MG)
     Dates: start: 20060412
  2. SEROQUEL [Concomitant]
  3. MELLARIL [Concomitant]
  4. HALDOL SOLUTAB [Concomitant]
  5. RISPERDAL [Concomitant]
  6. ATIVAN [Concomitant]

REACTIONS (2)
  - GAIT DISTURBANCE [None]
  - NEUROLEPTIC MALIGNANT SYNDROME [None]
